FAERS Safety Report 4664489-5 (Version None)
Quarter: 2005Q2

REPORT INFORMATION
  Report Type: 
  Country: None (occurrence: None)
  Receive Date: 20050518
  Receipt Date: 20050509
  Transmission Date: 20051028
  Serious: Yes (Other)
  Sender: FDA-Public Use
  Company Number: 200514009US

PATIENT
  Sex: 0

DRUGS (2)
  1. KETEK [Suspect]
     Dosage: DOSE: UNK
  2. UNKNOWN DRUG [Concomitant]

REACTIONS (1)
  - RENAL FAILURE ACUTE [None]
